FAERS Safety Report 25250582 (Version 1)
Quarter: 2025Q2

REPORT INFORMATION
  Report Type: Report from Study
  Country: US (occurrence: US)
  Receive Date: 20250429
  Receipt Date: 20250429
  Transmission Date: 20250717
  Serious: Yes (Hospitalization, Other)
  Sender: BAYER HEALTHCARE PHARMACEUTICALS INC.
  Company Number: US-BAYER-2025A041480

PATIENT
  Age: 76 Year
  Sex: Male

DRUGS (13)
  1. STIVARGA [Suspect]
     Active Substance: REGORAFENIB MONOHYDRATE
     Indication: Colorectal cancer metastatic
     Dosage: 160 MG, QD
     Route: 048
     Dates: start: 20250302
  2. STIVARGA [Suspect]
     Active Substance: REGORAFENIB MONOHYDRATE
     Indication: Colon cancer
     Dosage: 120 MG, QD
     Route: 048
     Dates: start: 202503, end: 202504
  3. ACETAMINOPHEN [Concomitant]
     Active Substance: ACETAMINOPHEN
  4. ATORVASTATIN [Concomitant]
     Active Substance: ATORVASTATIN
  5. DILTIAZEM [Concomitant]
     Active Substance: DILTIAZEM
  6. LEUCOVORIN CALCIUM [Concomitant]
     Active Substance: LEUCOVORIN CALCIUM
  7. LOPERAMIDE [Concomitant]
     Active Substance: LOPERAMIDE
  8. METOPROLOL SUCCINATE [Concomitant]
     Active Substance: METOPROLOL SUCCINATE
  9. PANTOPRAZOLE [Concomitant]
     Active Substance: PANTOPRAZOLE
  10. TAMSULOSIN [Concomitant]
     Active Substance: TAMSULOSIN
  11. SENNA [Concomitant]
     Active Substance: SENNOSIDES
  12. ELIQUIS [Concomitant]
     Active Substance: APIXABAN
  13. ZOFRAN [Concomitant]
     Active Substance: ONDANSETRON HYDROCHLORIDE

REACTIONS (8)
  - Decreased appetite [Not Recovered/Not Resolved]
  - Fatigue [Not Recovered/Not Resolved]
  - Dyspnoea [Not Recovered/Not Resolved]
  - Peripheral swelling [Not Recovered/Not Resolved]
  - Atrial fibrillation [Not Recovered/Not Resolved]
  - Platelet count decreased [Not Recovered/Not Resolved]
  - Hepatic enzyme increased [Not Recovered/Not Resolved]
  - Hypotension [Not Recovered/Not Resolved]

NARRATIVE: CASE EVENT DATE: 20250301
